FAERS Safety Report 7582272-8 (Version None)
Quarter: 2011Q2

REPORT INFORMATION
  Report Type: 
  Country: None (occurrence: None)
  Receive Date: 20110527
  Receipt Date: 20110106
  Transmission Date: 20111010
  Serious: Yes (Hospitalization)
  Sender: FDA-Public Use
  Company Number: US201101002255

PATIENT
  Sex: Female

DRUGS (7)
  1. SOMA [Concomitant]
  2. NORVASC [Concomitant]
  3. METFORMIN HCL [Concomitant]
  4. LANTUS [Concomitant]
  5. BYETTA [Suspect]
     Dosage: 5 D/F, 2/D
  6. ALTACE [Concomitant]
  7. CRESTOR [Concomitant]

REACTIONS (2)
  - ANGIOEDEMA [None]
  - OFF LABEL USE [None]
